FAERS Safety Report 7818391-8 (Version None)
Quarter: 2011Q4

REPORT INFORMATION
  Report Type: 
  Country: None (occurrence: None)
  Receive Date: 20111017
  Receipt Date: 20111011
  Transmission Date: 20120403
  Serious: Yes (Hospitalization)
  Sender: FDA-Public Use
  Company Number: US-AMGEN-USACT2011052628

PATIENT
  Age: 80 Year
  Sex: Female
  Weight: 57.596 kg

DRUGS (12)
  1. ASPIRIN [Concomitant]
     Indication: CARDIOVASCULAR EVENT PROPHYLAXIS
  2. CORTICOSTEROIDS [Concomitant]
  3. CALTRATE D [Concomitant]
     Indication: MINERAL SUPPLEMENTATION
  4. LISINOPRIL [Concomitant]
     Indication: HYPERTENSION
  5. GEMCITABINE HYDROCHLORIDE [Concomitant]
     Dosage: UNK
     Route: 042
     Dates: start: 20110907
  6. PANITUMUMAB [Suspect]
     Indication: BREAST CANCER
     Dosage: 6 MG/M2, UNK
     Route: 042
     Dates: start: 20110907
  7. CARBOPLATIN [Concomitant]
     Dosage: UNK
     Route: 042
     Dates: start: 20110907
  8. ALLEGRA [Concomitant]
     Indication: HYPERSENSITIVITY
  9. MARINOL [Concomitant]
     Indication: DECREASED APPETITE
  10. SIMVASTATIN [Concomitant]
     Indication: HYPERCHOLESTEROLAEMIA
  11. EYE DROPS [Concomitant]
  12. NAMENDA [Concomitant]
     Indication: DEMENTIA

REACTIONS (5)
  - BLOOD GLUCOSE DECREASED [None]
  - BLOOD UREA INCREASED [None]
  - FAILURE TO THRIVE [None]
  - DEHYDRATION [None]
  - BLOOD POTASSIUM INCREASED [None]
